FAERS Safety Report 6096389-0 (Version None)
Quarter: 2009Q1

REPORT INFORMATION
  Report Type: 
  Country: None (occurrence: None)
  Receive Date: 20090227
  Receipt Date: 20081204
  Transmission Date: 20090719
  Serious: No
  Sender: FDA-Public Use
  Company Number: A0759065A

PATIENT
  Sex: Female

DRUGS (4)
  1. LAMICTAL [Suspect]
     Route: 048
  2. DILANTIN [Concomitant]
  3. ZONEGRAN [Concomitant]
  4. ZOLOFT [Concomitant]

REACTIONS (15)
  - AMNESIA [None]
  - CONFUSIONAL STATE [None]
  - CONTUSION [None]
  - CYSTITIS [None]
  - DISORIENTATION [None]
  - DIZZINESS [None]
  - FALL [None]
  - FATIGUE [None]
  - FRUSTRATION [None]
  - ILL-DEFINED DISORDER [None]
  - INSOMNIA [None]
  - MUSCULAR WEAKNESS [None]
  - MYALGIA [None]
  - NAUSEA [None]
  - VISION BLURRED [None]
